FAERS Safety Report 15974628 (Version 1)
Quarter: 2019Q1

REPORT INFORMATION
  Report Type: Spontaneous
  Country: FR (occurrence: FR)
  Receive Date: 20190218
  Receipt Date: 20190218
  Transmission Date: 20190418
  Serious: Yes (Other)
  Sender: FDA-Public Use
  Company Number: FR-TEVA-2019-FR-1011820

PATIENT
  Age: 51 Year
  Sex: Female

DRUGS (1)
  1. PROGESTERONE. [Suspect]
     Active Substance: PROGESTERONE
     Indication: CONTRACEPTION
     Route: 048
     Dates: start: 2014

REACTIONS (2)
  - Disease recurrence [Recovered/Resolved with Sequelae]
  - Meningioma [Recovered/Resolved with Sequelae]

NARRATIVE: CASE EVENT DATE: 201505
